FAERS Safety Report 13013550 (Version 4)
Quarter: 2017Q2

REPORT INFORMATION
  Report Type: Report from Study
  Country: US (occurrence: US)
  Receive Date: 20161209
  Receipt Date: 20170530
  Transmission Date: 20170830
  Serious: Yes (Hospitalization)
  Sender: FDA-Public Use
  Company Number: US-ASTELLAS-2016US048026

PATIENT
  Age: 55 Year
  Sex: Female
  Weight: 57 kg

DRUGS (3)
  1. BENADRYL [Concomitant]
     Active Substance: DIPHENHYDRAMINE HYDROCHLORIDE
     Indication: URTICARIA
     Dosage: UNK UNK, AS NEEDED
     Route: 061
  2. ERLOTINIB [Suspect]
     Active Substance: ERLOTINIB
     Indication: NON-SMALL CELL LUNG CANCER
     Route: 048
     Dates: start: 20160913
  3. TYLENOL [Concomitant]
     Active Substance: ACETAMINOPHEN
     Indication: PAIN
     Dosage: UNK UNK, UNKNOWN FREQ.
     Route: 065

REACTIONS (39)
  - Viral infection [Recovering/Resolving]
  - Memory impairment [Unknown]
  - Alopecia [Not Recovered/Not Resolved]
  - Diarrhoea [Recovering/Resolving]
  - Syncope [Recovering/Resolving]
  - Oral pain [Unknown]
  - Acne [Unknown]
  - Stomatitis [Recovered/Resolved with Sequelae]
  - Onychalgia [Unknown]
  - Pain in extremity [Unknown]
  - Body height decreased [Not Recovered/Not Resolved]
  - Weight fluctuation [Unknown]
  - Pruritus [Unknown]
  - Fatigue [Unknown]
  - Oral mucosal blistering [Recovered/Resolved with Sequelae]
  - Nail growth abnormal [Unknown]
  - Muscular weakness [Not Recovered/Not Resolved]
  - Asthenia [Not Recovered/Not Resolved]
  - Chills [Recovered/Resolved]
  - Gastrooesophageal reflux disease [Not Recovered/Not Resolved]
  - Haemorrhage [Unknown]
  - Gastric ulcer [Not Recovered/Not Resolved]
  - Visual impairment [Not Recovered/Not Resolved]
  - Onychoclasis [Unknown]
  - Skin ulcer [Unknown]
  - Rash [Unknown]
  - Chills [Recovered/Resolved]
  - Pyrexia [Recovered/Resolved]
  - Infection [Recovered/Resolved]
  - Nail bed bleeding [Unknown]
  - Alopecia [Not Recovered/Not Resolved]
  - Eye irritation [Unknown]
  - Pyrexia [Recovered/Resolved]
  - Insomnia [Not Recovered/Not Resolved]
  - Gastric disorder [Recovering/Resolving]
  - Grip strength decreased [Not Recovered/Not Resolved]
  - Arthralgia [Not Recovered/Not Resolved]
  - Vision blurred [Not Recovered/Not Resolved]
  - Rash [Not Recovered/Not Resolved]

NARRATIVE: CASE EVENT DATE: 201611
